FAERS Safety Report 6584930-0 (Version None)
Quarter: 2010Q1

REPORT INFORMATION
  Report Type: 
  Country: None (occurrence: None)
  Receive Date: 20100204
  Receipt Date: 20100122
  Transmission Date: 20100710
  Serious: Yes (Hospitalization)
  Sender: FDA-Public Use
  Company Number: 234621K09USA

PATIENT
  Age: 49 Year
  Sex: Female

DRUGS (8)
  1. REBIF [Suspect]
     Indication: MULTIPLE SCLEROSIS
     Dosage: 44 MCG, 3 IN 1 WEEKS, SUBCUTANEOUS; 44 MCG, 3 IN 1 WEEKS, SUBCUTANEOUS
     Route: 058
     Dates: start: 20060726, end: 20090424
  2. REBIF [Suspect]
     Indication: MULTIPLE SCLEROSIS
     Dosage: 44 MCG, 3 IN 1 WEEKS, SUBCUTANEOUS; 44 MCG, 3 IN 1 WEEKS, SUBCUTANEOUS
     Route: 058
     Dates: start: 20090513, end: 20100126
  3. PROVIGIL [Concomitant]
  4. HYDROCHLOROTHIAZIDE [Concomitant]
  5. FOSINOPRIL (FOSINOPRIL /00915301/) [Concomitant]
  6. IBUPROFEN [Concomitant]
  7. XANAX [Concomitant]
  8. EFFEXOR [Concomitant]

REACTIONS (12)
  - CHILLS [None]
  - DECREASED APPETITE [None]
  - DRUG INEFFECTIVE [None]
  - DRUG INTOLERANCE [None]
  - INFLUENZA LIKE ILLNESS [None]
  - METASTASES TO LYMPH NODES [None]
  - NAUSEA [None]
  - NON-SMALL CELL LUNG CANCER RECURRENT [None]
  - PNEUMOTHORAX [None]
  - PROCEDURAL COMPLICATION [None]
  - PYREXIA [None]
  - TRAUMATIC LUNG INJURY [None]
